FAERS Safety Report 16138642 (Version 6)
Quarter: 2019Q4

REPORT INFORMATION
  Report Type: Report from Study
  Country: US (occurrence: US)
  Receive Date: 20190330
  Receipt Date: 20191122
  Transmission Date: 20200122
  Serious: No
  Sender: FDA-Public Use
  Company Number: PHEH2019US013671

PATIENT
  Sex: Male
  Weight: 52.15 kg

DRUGS (1)
  1. COSENTYX [Suspect]
     Active Substance: SECUKINUMAB
     Indication: PSORIASIS
     Dosage: 300 MG, QMO
     Route: 058

REACTIONS (6)
  - Myalgia [Not Recovered/Not Resolved]
  - Localised infection [Unknown]
  - Wound [Unknown]
  - Muscle spasms [Not Recovered/Not Resolved]
  - Rotator cuff syndrome [Unknown]
  - Depression [Unknown]
